FAERS Safety Report 6507582-4 (Version None)
Quarter: 2009Q4

REPORT INFORMATION
  Report Type: 
  Country: None (occurrence: None)
  Receive Date: 20091221
  Receipt Date: 20090105
  Transmission Date: 20100525
  Serious: No
  Sender: FDA-Public Use
  Company Number: US-BRISTOL-MYERS SQUIBB COMPANY-14460984

PATIENT

DRUGS (2)
  1. PRAVACHOL [Suspect]
     Route: 065
  2. SIMCOR [Suspect]
     Route: 065

REACTIONS (1)
  - ABDOMINAL DISCOMFORT [None]
